FAERS Safety Report 13585708 (Version 2)
Quarter: 2017Q2

REPORT INFORMATION
  Report Type: Spontaneous
  Country: JP (occurrence: JP)
  Receive Date: 20170526
  Receipt Date: 20170530
  Transmission Date: 20170830
  Serious: Yes (Hospitalization, Other)
  Sender: FDA-Public Use
  Company Number: JP-SA-2017SA095123

PATIENT
  Age: 33 Year
  Sex: Female
  Weight: 50.7 kg

DRUGS (3)
  1. OXALIPLATIN. [Suspect]
     Active Substance: OXALIPLATIN
     Indication: ADENOCARCINOMA GASTRIC
     Route: 042
  2. EDOXABAN [Interacting]
     Active Substance: EDOXABAN TOSYLATE
     Indication: EMBOLISM VENOUS
     Route: 065
  3. TS-1 [Interacting]
     Active Substance: GIMERACIL\OTERACIL\TEGAFUR
     Indication: ADENOCARCINOMA GASTRIC
     Route: 042

REACTIONS (4)
  - Nausea [Unknown]
  - Ischaemic stroke [Unknown]
  - Drug interaction [Unknown]
  - Vertigo [Unknown]
